FAERS Safety Report 9485256 (Version 1)
Quarter: 2013Q3

REPORT INFORMATION
  Report Type: Report from Study
  Country: CA (occurrence: CA)
  Receive Date: 20130828
  Receipt Date: 20130828
  Transmission Date: 20140515
  Serious: Yes (Disabling, Other)
  Sender: FDA-Public Use
  Company Number: CA-ABBOTT-13P-028-1137522-00

PATIENT
  Age: 56 Year
  Sex: Female
  Weight: 72.64 kg

DRUGS (5)
  1. HUMIRA [Suspect]
     Indication: RHEUMATOID ARTHRITIS
     Route: 058
     Dates: start: 20071204, end: 201307
  2. HUMIRA [Suspect]
     Dates: start: 20130818
  3. METHOTREXATE [Concomitant]
     Indication: RHEUMATOID ARTHRITIS
     Route: 048
  4. ENTROPHEN [Concomitant]
     Indication: RHEUMATOID ARTHRITIS
     Route: 048
  5. FOSAVANCE [Concomitant]
     Indication: OSTEOPOROSIS
     Route: 048

REACTIONS (4)
  - Spinal fracture [Recovering/Resolving]
  - Fall [Recovered/Resolved]
  - Decubitus ulcer [Recovering/Resolving]
  - Stomatitis [Recovering/Resolving]
